FAERS Safety Report 5503727-3 (Version None)
Quarter: 2007Q4

REPORT INFORMATION
  Report Type: 
  Country: None (occurrence: None)
  Receive Date: 20071101
  Receipt Date: 20071022
  Transmission Date: 20080405
  Serious: Yes (Other)
  Sender: FDA-Public Use
  Company Number: US-JNJFOC-20071006249

PATIENT
  Sex: Female
  Weight: 68.04 kg

DRUGS (7)
  1. ULTRAM [Suspect]
     Indication: ARTHRITIS
     Route: 048
  2. ULTRAM [Suspect]
     Indication: BACK PAIN
     Route: 048
  3. CELEBREX [Suspect]
     Indication: PAIN IN EXTREMITY
     Route: 048
  4. CELEBREX [Suspect]
     Indication: ARTHRITIS
     Route: 048
  5. ATENOLOL [Concomitant]
     Indication: ARRHYTHMIA
     Route: 048
  6. DYAZIDE [Concomitant]
     Indication: FLUID RETENTION
     Route: 048
  7. FOSAMAX [Concomitant]
     Indication: OSTEOPOROSIS
     Route: 048

REACTIONS (3)
  - FEELING ABNORMAL [None]
  - PNEUMONIA [None]
  - URINARY TRACT INFECTION [None]
